FAERS Safety Report 23297959 (Version 1)
Quarter: 2023Q4

REPORT INFORMATION
  Report Type: Spontaneous
  Country: JP (occurrence: JP)
  Receive Date: 20231214
  Receipt Date: 20231214
  Transmission Date: 20240110
  Serious: Yes (Other)
  Sender: FDA-Public Use
  Company Number: PA2023JP000142

PATIENT
  Sex: Female
  Weight: 70 kg

DRUGS (4)
  1. REMIMAZOLAM [Suspect]
     Active Substance: REMIMAZOLAM
     Indication: Induction and maintenance of anaesthesia
     Dosage: UNK
     Route: 042
  2. REMIMAZOLAM [Suspect]
     Active Substance: REMIMAZOLAM
     Dosage: 10 MILLILITER (MAINTENANCE)
     Route: 042
  3. FENTANYL [Suspect]
     Active Substance: FENTANYL\FENTANYL CITRATE
     Indication: Product used for unknown indication
     Dosage: 1 DOSAGE FORM
     Route: 065
  4. FLUMAZENIL [Concomitant]
     Active Substance: FLUMAZENIL
     Indication: Product used for unknown indication
     Dosage: UNK
     Route: 065

REACTIONS (3)
  - Respiratory arrest [Unknown]
  - Sedation [Recovered/Resolved]
  - Glossoptosis [Unknown]
